FAERS Safety Report 14725992 (Version 7)
Quarter: 2019Q3

REPORT INFORMATION
  Report Type: Report from Study
  Country: CA (occurrence: CA)
  Receive Date: 20180406
  Receipt Date: 20190925
  Transmission Date: 20191004
  Serious: Yes (Other)
  Sender: FDA-Public Use
  Company Number: CA-BRISTOL-MYERS SQUIBB COMPANY-BMS-2018-028226

PATIENT
  Age: 52 Year
  Sex: Female

DRUGS (2)
  1. ABATACEPT [Suspect]
     Active Substance: ABATACEPT
     Indication: PSORIATIC ARTHROPATHY
     Dosage: 750 MG, Q4WK
     Route: 042
     Dates: start: 20140515
  2. ABATACEPT [Suspect]
     Active Substance: ABATACEPT
     Indication: RHEUMATOID ARTHRITIS
     Route: 065

REACTIONS (9)
  - Pyrexia [Recovered/Resolved]
  - Sinusitis [Recovering/Resolving]
  - Arthralgia [Recovering/Resolving]
  - Gingival cancer [Unknown]
  - Rheumatoid arthritis [Not Recovered/Not Resolved]
  - Oropharyngeal pain [Unknown]
  - Genital herpes [Recovered/Resolved]
  - Pain in extremity [Unknown]
  - Oedema peripheral [Unknown]

NARRATIVE: CASE EVENT DATE: 20181115
